FAERS Safety Report 4476729-6 (Version None)
Quarter: 2004Q4

REPORT INFORMATION
  Report Type: 
  Country: None (occurrence: None)
  Receive Date: 20041013
  Receipt Date: 20040805
  Transmission Date: 20050328
  Serious: Yes (Death)
  Sender: FDA-Public Use
  Company Number: KII-2002-0012764

PATIENT
  Age: 41 Year
  Sex: Male

DRUGS (3)
  1. OXYCONTIN [Suspect]
  2. LORCET (PARACETAMOL, HYDROCODOEN BITARTRATE) [Suspect]
  3. AMOXICILLIN [Suspect]
     Dosage: 1000 MG, TID,

REACTIONS (1)
  - COMPLETED SUICIDE [None]
